FAERS Safety Report 9787620 (Version 2)
Quarter: 2014Q1

REPORT INFORMATION
  Report Type: Spontaneous
  Country: US (occurrence: US)
  Receive Date: 20131230
  Receipt Date: 20140228
  Transmission Date: 20141002
  Serious: Yes (Other)
  Sender: FDA-Public Use
  Company Number: US-JNJFOC-20131211711

PATIENT
  Sex: Female
  Weight: 113.4 kg

DRUGS (8)
  1. EXTRA STRENGTH TYLENOL [Suspect]
     Indication: HEADACHE
     Route: 065
     Dates: start: 200101, end: 2011
  2. EXTRA STRENGTH TYLENOL [Suspect]
     Indication: HEADACHE
     Route: 065
     Dates: start: 2001, end: 2011
  3. TYLENOL PM [Suspect]
     Indication: HEADACHE
     Route: 065
     Dates: start: 2001, end: 2011
  4. TYLENOL PM [Suspect]
     Indication: HEADACHE
     Route: 065
     Dates: start: 2001, end: 2011
  5. TYLENOL COLD AND FLU [Suspect]
     Indication: SINUS DISORDER
     Route: 065
  6. TYLENOL COLD AND FLU [Suspect]
     Indication: NASOPHARYNGITIS
     Route: 065
  7. TYLENOL SINUS [Suspect]
     Indication: SINUS DISORDER
     Route: 065
  8. TYLENOL SINUS [Suspect]
     Indication: NASOPHARYNGITIS
     Route: 065

REACTIONS (1)
  - Acute hepatic failure [Unknown]
